FAERS Safety Report 9477434 (Version 2)
Quarter: 2013Q3

REPORT INFORMATION
  Report Type: Spontaneous
  Country: DK (occurrence: DE)
  Receive Date: 20130826
  Receipt Date: 20130826
  Transmission Date: 20140515
  Serious: Yes (Hospitalization, Other)
  Sender: FDA-Public Use
  Company Number: DE-FRI-1000047498

PATIENT
  Age: 28 Year
  Sex: Female
  Weight: 48 kg

DRUGS (5)
  1. ESCITALOPRAM [Suspect]
     Indication: DEPRESSION
     Dosage: 20 MG
     Route: 048
  2. AMITRIPTYLINOXIDE [Suspect]
     Indication: DEPRESSION
     Dosage: 120 MG
  3. L-THYROXIN [Concomitant]
     Indication: AUTOIMMUNE THYROIDITIS
     Dosage: CHANGING DOSAGES
     Route: 048
  4. RAMIPRIL [Concomitant]
     Route: 048
  5. BISOPROLOL [Concomitant]
     Route: 048

REACTIONS (2)
  - Urinary retention [Not Recovered/Not Resolved]
  - Cystitis [Unknown]
